FAERS Safety Report 8843055 (Version 2)
Quarter: 2013Q1

REPORT INFORMATION
  Report Type: Spontaneous
  Country: GB (occurrence: GB)
  Receive Date: 20121016
  Receipt Date: 20130204
  Transmission Date: 20140127
  Serious: Yes (Other)
  Sender: FDA-Public Use
  Company Number: GB-GLAXOSMITHKLINE-B0837809A

PATIENT
  Sex: Female

DRUGS (4)
  1. MALARONE [Suspect]
     Indication: PRODUCT USED FOR UNKNOWN INDICATION
     Route: 065
  2. ADRENALINE [Concomitant]
  3. LOCAL ANAESTHETIC [Concomitant]
  4. HEPATITIS B VACCINE [Concomitant]

REACTIONS (1)
  - Ventricular tachycardia [Unknown]
